FAERS Safety Report 10415166 (Version 2)
Quarter: 2014Q4

REPORT INFORMATION
  Report Type: Report from Study
  Country: BR (occurrence: BR)
  Receive Date: 20140828
  Receipt Date: 20141106
  Transmission Date: 20150528
  Serious: No
  Sender: FDA-Public Use
  Company Number: BR-ROCHE-1454995

PATIENT
  Sex: Female
  Weight: 65 kg

DRUGS (7)
  1. LEXOTAN [Concomitant]
     Active Substance: BROMAZEPAM
  2. HYDROXYCHLOROQUINE [Concomitant]
     Active Substance: HYDROXYCHLOROQUINE
  3. AMYTRIL [Concomitant]
     Active Substance: AMITRIPTYLINE HYDROCHLORIDE
  4. MIOSAN [Concomitant]
     Active Substance: CYCLOBENZAPRINE
  5. LOSARTAN [Concomitant]
     Active Substance: LOSARTAN
  6. ACTEMRA [Suspect]
     Active Substance: TOCILIZUMAB
     Indication: RHEUMATOID ARTHRITIS
     Route: 042
     Dates: start: 20140818
  7. AZUKON [Concomitant]
     Active Substance: GLICLAZIDE

REACTIONS (2)
  - Infusion related reaction [Recovering/Resolving]
  - Gait disturbance [Not Recovered/Not Resolved]
